FAERS Safety Report 23280212 (Version 3)
Quarter: 2024Q1

REPORT INFORMATION
  Report Type: Other
  Country: PL (occurrence: PL)
  Receive Date: 20231210
  Receipt Date: 20240123
  Transmission Date: 20240410
  Serious: Yes (Hospitalization)
  Sender: FDA-Public Use
  Company Number: None

PATIENT
  Age: 64 Year
  Sex: Male

DRUGS (20)
  1. OMEPRAZOLE [Interacting]
     Active Substance: OMEPRAZOLE
     Indication: Gastrooesophageal reflux disease
     Dosage: 40 MILLIGRAM, QD, CAPSULE, HARD
     Route: 048
  2. OMEPRAZOLE [Interacting]
     Active Substance: OMEPRAZOLE
     Indication: Gastrooesophageal reflux disease
     Dosage: 15 MILLIGRAM
     Route: 065
  3. OMEPRAZOLE [Interacting]
     Active Substance: OMEPRAZOLE
     Indication: Reflux gastritis
  4. METFORMIN [Interacting]
     Active Substance: METFORMIN HYDROCHLORIDE
     Indication: Type 2 diabetes mellitus
     Dosage: 1000 MG, PER DAY, 4 TIMES A DAY, EXTENDED RELEASE, (METFORMIN XR (EXTENDED-RELEASE) WAS USED IN COMB
     Route: 065
  5. METFORMIN [Interacting]
     Active Substance: METFORMIN HYDROCHLORIDE
     Dosage: 4000 MILLIGRAM, QD (1000 MILLIGRAM, QID)
     Route: 048
  6. MIRTAZAPINE [Interacting]
     Active Substance: MIRTAZAPINE
     Indication: Depression
     Dosage: 15 MG,AT NIGHT (15 MILLIGRAM, QD EVENING), MIRTAZAPINE WAS USED IN COMBINATION WITH SERTRALINE
     Route: 065
  7. MIRTAZAPINE [Interacting]
     Active Substance: MIRTAZAPINE
     Indication: Insomnia
  8. METAMIZOLE [Suspect]
     Active Substance: METAMIZOLE
     Indication: Arthralgia
     Dosage: 1000 MILLIGRAM, 0.33X PER DAY (METAMIZOL WAS USED IN COMBINATION WITH OXYCODONE, DEXKETOPROFEN AND P
     Route: 048
  9. DEXKETOPROFEN [Suspect]
     Active Substance: DEXKETOPROFEN
     Indication: Arthralgia
     Dosage: 50 MILLIGRAM 0.33X PER DAY
     Route: 048
  10. ACETAMINOPHEN\TRAMADOL [Interacting]
     Active Substance: ACETAMINOPHEN\TRAMADOL
     Indication: Arthralgia
     Dosage: 75 MILLIGRAM, EVERY 8 HOURS, DOSE OF TRAMADOL IN THE COMBINATION PRODUCT WAS 75 MG 3 TIMES DAILY (TR
     Route: 048
  11. ACETAMINOPHEN\TRAMADOL [Interacting]
     Active Substance: ACETAMINOPHEN\TRAMADOL
     Dosage: 650 MILLIGRAM, EVERY 8 HOURS, DOSE OF PARACETAMOL IN THE COMBINATION PRODUCT WAS 650 MG 3 TIMES DAIL
     Route: 048
  12. OXYCODONE [Suspect]
     Active Substance: OXYCODONE
     Indication: Arthralgia
     Dosage: 20 MILLIGRAM, QD, TITRATED DOSE
     Route: 042
  13. PREGABALIN [Suspect]
     Active Substance: PREGABALIN
     Indication: Arthralgia
     Dosage: 75 MILLIGRAM, EVERY 12 HRS, TWICE DAILY (150 MILLIGRAM DAILY)
     Route: 048
  14. PREGABALIN [Suspect]
     Active Substance: PREGABALIN
     Indication: Insomnia
  15. SERTRALINE [Interacting]
     Active Substance: SERTRALINE HYDROCHLORIDE
     Indication: Depression
     Dosage: 50 MILLIGRAM, EVERY MORNING
     Route: 048
  16. SERTRALINE [Interacting]
     Active Substance: SERTRALINE HYDROCHLORIDE
     Indication: Insomnia
  17. DAPAGLIFLOZIN [Interacting]
     Active Substance: DAPAGLIFLOZIN
     Indication: Type 2 diabetes mellitus
     Dosage: 10 MILLIGRAM, QD
     Route: 048
  18. CIPROFLOXACIN [Interacting]
     Active Substance: CIPROFLOXACIN
     Indication: Urinary tract infection
     Dosage: 1000 MILLIGRAM, QD (500 MILLIGRAM, BID)
     Route: 048
  19. CIPROFLOXACIN [Interacting]
     Active Substance: CIPROFLOXACIN
     Indication: Type 2 diabetes mellitus
     Dosage: 500 MILLIGRAM, BID
     Route: 048
  20. PANTOPRAZOLE [Concomitant]
     Active Substance: PANTOPRAZOLE
     Indication: Reflux gastritis
     Dosage: UNK
     Route: 065

REACTIONS (8)
  - Drug interaction [Recovered/Resolved]
  - Medication error [Unknown]
  - Arthralgia [Recovered/Resolved]
  - Drug ineffective [Recovered/Resolved]
  - Contraindicated product administered [Unknown]
  - Sedation [Recovered/Resolved]
  - Labelled drug-drug interaction issue [Unknown]
  - Overdose [Recovered/Resolved]
